FAERS Safety Report 8922936 (Version 1)
Quarter: 2012Q4

REPORT INFORMATION
  Report Type: 
  Country: JP (occurrence: JP)
  Receive Date: 20121123
  Receipt Date: 20121123
  Transmission Date: 20130627
  Serious: Yes (Other)
  Sender: FDA-Public Use
  Company Number: JP-PFIZER INC-2012287205

PATIENT
  Age: 58 Year
  Sex: Male

DRUGS (3)
  1. CISPLATIN [Suspect]
     Dosage: UNK
     Dates: start: 200811
  2. FLUOROURACIL [Suspect]
     Dosage: UNK
     Dates: start: 200811
  3. PEPLOMYCIN [Suspect]
     Indication: CANCER
     Dosage: UNK
     Dates: start: 200811

REACTIONS (1)
  - Deep vein thrombosis [Recovered/Resolved]
